FAERS Safety Report 11266111 (Version 1)
Quarter: 2015Q3

REPORT INFORMATION
  Report Type: Spontaneous
  Country: GR (occurrence: GR)
  Receive Date: 20150713
  Receipt Date: 20150713
  Transmission Date: 20151125
  Serious: Yes (Other)
  Sender: FDA-Public Use
  Company Number: GR-PFIZER INC-2015227771

PATIENT
  Age: 70 Year
  Sex: Female

DRUGS (2)
  1. LYRICA [Suspect]
     Active Substance: PREGABALIN
     Dosage: 75 MG, 2X/DAY
  2. LYRICA [Suspect]
     Active Substance: PREGABALIN
     Dosage: 75 MG, 1X/DAY
     Dates: end: 201507

REACTIONS (6)
  - Diplopia [Recovering/Resolving]
  - Hemiplegia [Recovering/Resolving]
  - Hand deformity [Recovering/Resolving]
  - Blindness [Not Recovered/Not Resolved]
  - Muscular weakness [Recovering/Resolving]
  - Trigeminal nerve paresis [Recovering/Resolving]
